FAERS Safety Report 10072100 (Version 1)
Quarter: 2014Q2

REPORT INFORMATION
  Report Type: Spontaneous
  Country: US (occurrence: None)
  Receive Date: 20140410
  Receipt Date: 20140410
  Transmission Date: 20141212
  Serious: Yes (Other)
  Sender: FDA-Public Use
  Company Number: None

PATIENT
  Age: 33 Year
  Sex: Female
  Weight: 61.24 kg

DRUGS (1)
  1. CORTICOSTEROID [Suspect]
     Indication: DERMATITIS

REACTIONS (7)
  - Drug withdrawal syndrome [None]
  - Pruritus [None]
  - Skin exfoliation [None]
  - Erythema [None]
  - Skin oedema [None]
  - Secretion discharge [None]
  - Burning sensation [None]
